FAERS Safety Report 12248982 (Version 1)
Quarter: 2016Q2

REPORT INFORMATION
  Report Type: Report from Study
  Country: IT (occurrence: IT)
  Receive Date: 20160408
  Receipt Date: 20160408
  Transmission Date: 20160815
  Serious: Yes (Hospitalization)
  Sender: FDA-Public Use
  Company Number: IT-SA-2016SA065726

PATIENT
  Age: 18 Year
  Sex: Male

DRUGS (1)
  1. MABCAMPATH [Suspect]
     Active Substance: ALEMTUZUMAB
     Indication: HISTIOCYTOSIS HAEMATOPHAGIC
     Route: 042
     Dates: start: 20160317, end: 20160317

REACTIONS (3)
  - Hypoxia [Recovering/Resolving]
  - Hyperthermia [Recovering/Resolving]
  - Hypotension [Recovering/Resolving]

NARRATIVE: CASE EVENT DATE: 20160317
